FAERS Safety Report 15626567 (Version 1)
Quarter: 2018Q4

REPORT INFORMATION
  Report Type: Spontaneous
  Country: US (occurrence: US)
  Receive Date: 20181116
  Receipt Date: 20181116
  Transmission Date: 20190205
  Serious: No
  Sender: FDA-Public Use
  Company Number: US-GLAXOSMITHKLINE-US2018202698

PATIENT
  Sex: Male

DRUGS (1)
  1. ABREVA [Suspect]
     Active Substance: DOCOSANOL
     Indication: ORAL HERPES
     Dosage: UNK

REACTIONS (6)
  - Oral herpes [Unknown]
  - Rash [Unknown]
  - Product physical consistency issue [Unknown]
  - Product complaint [Unknown]
  - Condition aggravated [Unknown]
  - Lip swelling [Unknown]
